FAERS Safety Report 23760572 (Version 3)
Quarter: 2024Q3

REPORT INFORMATION
  Report Type: Spontaneous
  Country: US (occurrence: US)
  Receive Date: 20240419
  Receipt Date: 20240709
  Transmission Date: 20241017
  Serious: No
  Sender: TOLMAR
  Company Number: US-TOLMAR, INC.-24US047952

PATIENT

DRUGS (1)
  1. ELIGARD [Suspect]
     Active Substance: LEUPROLIDE ACETATE
     Indication: Product used for unknown indication
     Dosage: UNK
     Dates: start: 20240325

REACTIONS (2)
  - Intercepted product preparation error [Unknown]
  - Product packaging quantity issue [Unknown]

NARRATIVE: CASE EVENT DATE: 20240325
